FAERS Safety Report 13705456 (Version 1)
Quarter: 2017Q2

REPORT INFORMATION
  Report Type: Spontaneous
  Country: GB (occurrence: GB)
  Receive Date: 20170630
  Receipt Date: 20170630
  Transmission Date: 20170830
  Serious: Yes (Life-Threatening)
  Sender: FDA-Public Use
  Company Number: GB-ASTRAZENECA-2017SE67115

PATIENT
  Age: 37 Year
  Sex: Female

DRUGS (6)
  1. QUETIAPINE FUMARATE. [Suspect]
     Active Substance: QUETIAPINE FUMARATE
     Route: 048
  2. PALIPERIDONE. [Suspect]
     Active Substance: PALIPERIDONE
  3. PIPORTIL DEPOT [Suspect]
     Active Substance: PIPOTIAZINE
  4. RISPERIDONE. [Suspect]
     Active Substance: RISPERIDONE
  5. CLOZAPINE. [Suspect]
     Active Substance: CLOZAPINE
  6. OLANZAPINE. [Suspect]
     Active Substance: OLANZAPINE

REACTIONS (5)
  - Oculogyric crisis [Unknown]
  - Akathisia [Unknown]
  - Respiratory distress [Unknown]
  - Obsessive-compulsive disorder [Unknown]
  - Dry throat [Unknown]
